FAERS Safety Report 6901611-1 (Version None)
Quarter: 2010Q3

REPORT INFORMATION
  Report Type: 
  Country: None (occurrence: None)
  Receive Date: 20100803
  Receipt Date: 20080224
  Transmission Date: 20110219
  Serious: No
  Sender: FDA-Public Use
  Company Number: US-PFIZER INC-2008017982

PATIENT
  Sex: Female
  Weight: 38.6 kg

DRUGS (13)
  1. LYRICA [Suspect]
     Indication: PAIN
     Route: 048
     Dates: start: 20080223
  2. BETOPTIC S [Concomitant]
  3. NITROGLYCERIN [Concomitant]
  4. METOPROLOL [Concomitant]
  5. VERAPAMIL - SLOW RELEASE [Concomitant]
  6. LACTULOSE [Concomitant]
  7. DULCOLAX [Concomitant]
  8. STOOL SOFTENER [Concomitant]
  9. PLAVIX [Concomitant]
  10. ACETYLSALICYLIC ACID SRT [Concomitant]
  11. MUCINEX [Concomitant]
  12. CALCIUM [Concomitant]
  13. TYLENOL [Concomitant]

REACTIONS (2)
  - DIZZINESS [None]
  - VISUAL IMPAIRMENT [None]
